FAERS Safety Report 8758775 (Version 1)
Quarter: 2012Q4

REPORT INFORMATION
  Report Type: Spontaneous
  Country: US (occurrence: None)
  Receive Date: 20120828
  Receipt Date: 20120828
  Transmission Date: 20130627
  Serious: Yes (Hospitalization)
  Sender: FDA-Public Use
  Company Number: None

PATIENT
  Sex: Male
  Weight: 70 kg

DRUGS (6)
  1. PEG-L-ASPARAGINASE [Suspect]
  2. VINCRISTINE SULFATE [Suspect]
  3. CYCLOPHOSPHAMIDE [Suspect]
  4. CYTARABINE [Suspect]
  5. MERCAPTOPURINE [Suspect]
  6. METHOTREXATE [Suspect]

REACTIONS (1)
  - Blood triglycerides increased [None]
